FAERS Safety Report 19812441 (Version 1)
Quarter: 2021Q3

REPORT INFORMATION
  Report Type: Spontaneous
  Country: US (occurrence: US)
  Receive Date: 20210910
  Receipt Date: 20210910
  Transmission Date: 20211014
  Serious: Yes (Other)
  Sender: FDA-Public Use
  Company Number: US-SUN PHARMACEUTICAL INDUSTRIES LTD-2021R1-310704

PATIENT
  Age: 18 Year
  Sex: Female

DRUGS (3)
  1. PROMETHAZINE [Suspect]
     Active Substance: PROMETHAZINE HYDROCHLORIDE
     Indication: HYPEREMESIS GRAVIDARUM
     Route: 042
  2. ONDANSETRON [Suspect]
     Active Substance: ONDANSETRON
     Indication: HYPEREMESIS GRAVIDARUM
     Route: 042
  3. THIAMINE. [Suspect]
     Active Substance: THIAMINE
     Indication: HYPEREMESIS GRAVIDARUM
     Route: 065

REACTIONS (2)
  - Exposure during pregnancy [Unknown]
  - Foetal death [Unknown]
